FAERS Safety Report 16534808 (Version 2)
Quarter: 2019Q3

REPORT INFORMATION
  Report Type: Report from Study
  Country: FR (occurrence: FR)
  Receive Date: 20190705
  Receipt Date: 20190731
  Transmission Date: 20191004
  Serious: Yes (Hospitalization, Other)
  Sender: FDA-Public Use
  Company Number: FR-REGENERON PHARMACEUTICALS, INC.-2019-41150

PATIENT

DRUGS (3)
  1. CEMIPLIMAB [Suspect]
     Active Substance: CEMIPLIMAB
     Dosage: UNK
     Route: 042
     Dates: start: 20190603, end: 20190603
  2. CEMIPLIMAB [Suspect]
     Active Substance: CEMIPLIMAB
     Indication: SQUAMOUS CELL CARCINOMA OF SKIN
     Dosage: UNK UNK, UNK
     Route: 042
     Dates: start: 20190517, end: 20190617
  3. CEMIPLIMAB [Suspect]
     Active Substance: CEMIPLIMAB
     Dosage: UNK
     Route: 042
     Dates: start: 20190507, end: 20190507

REACTIONS (9)
  - Cholestasis [Unknown]
  - General physical health deterioration [Unknown]
  - Haemothorax [Unknown]
  - Hepatocellular injury [Unknown]
  - Visual acuity reduced [Unknown]
  - Hallucination, visual [Unknown]
  - Cholestasis [Unknown]
  - Acute kidney injury [Unknown]
  - Cerebral atrophy [Unknown]

NARRATIVE: CASE EVENT DATE: 20190617
